FAERS Safety Report 12473881 (Version 1)
Quarter: 2016Q2

REPORT INFORMATION
  Report Type: Spontaneous
  Country: US (occurrence: US)
  Receive Date: 20160616
  Receipt Date: 20160616
  Transmission Date: 20160815
  Serious: No
  Sender: FDA-Public Use
  Company Number: US-PFIZER INC-2016274610

PATIENT
  Sex: Female

DRUGS (3)
  1. ASPIRIN. [Suspect]
     Active Substance: ASPIRIN
  2. IBUPROFEN. [Suspect]
     Active Substance: IBUPROFEN
  3. NAPROXEN SODIUM. [Suspect]
     Active Substance: NAPROXEN SODIUM

REACTIONS (1)
  - Vomiting [Unknown]
